FAERS Safety Report 25166775 (Version 1)
Quarter: 2025Q2

REPORT INFORMATION
  Report Type: Spontaneous
  Country: JP (occurrence: JP)
  Receive Date: 20250407
  Receipt Date: 20250407
  Transmission Date: 20250716
  Serious: Yes (Other)
  Sender: CHEPLAPHARM
  Company Number: JP-CHEPLA-2025004364

PATIENT
  Age: 75 Year
  Sex: Female

DRUGS (8)
  1. GANCICLOVIR [Suspect]
     Active Substance: GANCICLOVIR
     Indication: Cytomegalovirus infection
  2. PEMBROLIZUMAB [Concomitant]
     Active Substance: PEMBROLIZUMAB
     Indication: Lung adenocarcinoma stage IV
  3. PEMBROLIZUMAB [Concomitant]
     Active Substance: PEMBROLIZUMAB
     Indication: Somnolence
  4. PEMBROLIZUMAB [Concomitant]
     Active Substance: PEMBROLIZUMAB
     Indication: Amnesia
  5. METHYLPREDNISOLONE [Concomitant]
     Active Substance: METHYLPREDNISOLONE
     Dosage: ON DAY 31, METHYL-PREDNISOLONE PULSE THERAPY (1 G/DAY FOR 3 DAYS) WAS STARTED?DAILY DOSE: 1 GRAM
  6. PREDNISOLONE [Concomitant]
     Active Substance: PREDNISOLONE
  7. ACYCLOVIR [Concomitant]
     Active Substance: ACYCLOVIR
  8. BETAMETHASONE [Concomitant]
     Active Substance: BETAMETHASONE

REACTIONS (2)
  - Depressed level of consciousness [Recovered/Resolved]
  - Cognitive disorder [Not Recovered/Not Resolved]
